FAERS Safety Report 8152783-5 (Version None)
Quarter: 2012Q1

REPORT INFORMATION
  Report Type: 
  Country: None (occurrence: None)
  Receive Date: 20120221
  Receipt Date: 20120213
  Transmission Date: 20120608
  Serious: Yes (Hospitalization)
  Sender: FDA-Public Use
  Company Number: US-JNJFOC-20060202626

PATIENT
  Sex: Male
  Weight: 36.29 kg

DRUGS (7)
  1. BENADRYL D SOLUTION [Suspect]
     Indication: SINUS CONGESTION
     Route: 048
     Dates: start: 20060202, end: 20060204
  2. BENADRYL D SOLUTION [Suspect]
     Indication: MULTIPLE ALLERGIES
     Route: 048
     Dates: start: 20060202, end: 20060204
  3. ACCUHIST LA [Concomitant]
     Indication: UPPER RESPIRATORY TRACT CONGESTION
     Dates: start: 20060131
  4. BENADRYL D SOLUTION [Suspect]
     Indication: RHINORRHOEA
     Route: 048
     Dates: start: 20060202, end: 20060204
  5. MOTRIN [Suspect]
     Indication: ILL-DEFINED DISORDER
     Route: 048
  6. BENADRYL D SOLUTION [Suspect]
     Indication: SNEEZING
     Route: 048
     Dates: start: 20060202, end: 20060204
  7. CHILDRENS VITAMINS [Concomitant]
     Route: 048

REACTIONS (6)
  - LOGORRHOEA [None]
  - HALLUCINATION, VISUAL [None]
  - PYREXIA [None]
  - MYDRIASIS [None]
  - ABASIA [None]
  - TOXICITY TO VARIOUS AGENTS [None]
